FAERS Safety Report 22057106 (Version 2)
Quarter: 2024Q4

REPORT INFORMATION
  Report Type: Spontaneous
  Country: ID (occurrence: ID)
  Receive Date: 20230303
  Receipt Date: 20241226
  Transmission Date: 20250115
  Serious: Yes (Other)
  Sender: ALKEM
  Company Number: None

PATIENT
  Age: 31 Year
  Sex: Female

DRUGS (12)
  1. MYCOPHENOLATE MOFETIL [Suspect]
     Active Substance: MYCOPHENOLATE MOFETIL
     Indication: Immunosuppressant drug therapy
     Dosage: 360 MILLIGRAM, BID
     Route: 065
  2. TACROLIMUS [Interacting]
     Active Substance: TACROLIMUS
     Indication: Immunosuppressant drug therapy
     Dosage: 3 MILLIGRAM, QD
     Route: 065
  3. TACROLIMUS [Interacting]
     Active Substance: TACROLIMUS
     Dosage: 4 MILLIGRAM, QD
     Route: 065
  4. TACROLIMUS [Interacting]
     Active Substance: TACROLIMUS
     Dosage: 8 MILLIGRAM, QD
     Route: 065
  5. METHYLPREDNISOLONE [Suspect]
     Active Substance: METHYLPREDNISOLONE
     Indication: Immunosuppressant drug therapy
     Dosage: 4 MILLIGRAM, QD
     Route: 065
  6. HUMAN IMMUNOGLOBULIN G [Suspect]
     Active Substance: HUMAN IMMUNOGLOBULIN G
     Indication: Immunosuppressant drug therapy
     Dosage: 7500 MILLIGRAM
     Route: 042
  7. RIFAMPIN [Interacting]
     Active Substance: RIFAMPIN
     Indication: Pulmonary tuberculosis
     Dosage: 600 MILLIGRAM, QD
     Route: 065
  8. RIFAMPIN [Interacting]
     Active Substance: RIFAMPIN
     Dosage: 300 MILLIGRAM, QD
     Route: 065
  9. ISONIAZID [Concomitant]
     Active Substance: ISONIAZID
     Indication: Pulmonary tuberculosis
     Dosage: 300 MILLIGRAM, QD
     Route: 065
  10. ISONIAZID [Concomitant]
     Active Substance: ISONIAZID
     Dosage: 400 MILLIGRAM, QD
     Route: 065
  11. MOXIFLOXACIN [Concomitant]
     Active Substance: MOXIFLOXACIN
     Indication: Pulmonary tuberculosis
     Dosage: 400 MILLIGRAM, QD
     Route: 065
  12. PYRAZINAMIDE [Concomitant]
     Active Substance: PYRAZINAMIDE
     Indication: Pulmonary tuberculosis
     Dosage: 1500 MILLIGRAM, QD
     Route: 065

REACTIONS (3)
  - Pulmonary tuberculosis [Recovered/Resolved]
  - Drug level decreased [Recovering/Resolving]
  - Drug interaction [Unknown]

NARRATIVE: CASE EVENT DATE: 20210101
